FAERS Safety Report 7600166-6 (Version None)
Quarter: 2011Q3

REPORT INFORMATION
  Report Type: 
  Country: None (occurrence: None)
  Receive Date: 20110711
  Receipt Date: 20110629
  Transmission Date: 20111222
  Serious: Yes (Hospitalization)
  Sender: FDA-Public Use
  Company Number: PHHY2011FR58621

PATIENT
  Age: 51 Year
  Sex: Male

DRUGS (3)
  1. TEGRETOL [Suspect]
     Dosage: 2 DF, DAILY
     Dates: start: 20110526, end: 20110530
  2. CLONAZEPAM [Suspect]
     Dosage: 60 GTT, DAILY
     Dates: start: 20110526, end: 20110530
  3. IXEL [Suspect]
     Dosage: 2 DF, DAILY
     Dates: start: 20110516, end: 20110528

REACTIONS (10)
  - PUSTULAR PSORIASIS [None]
  - ASTHENIA [None]
  - CONJUNCTIVITIS [None]
  - STAPHYLOCOCCAL INFECTION [None]
  - PURPURA [None]
  - GENERAL PHYSICAL HEALTH DETERIORATION [None]
  - RASH GENERALISED [None]
  - BURNING SENSATION [None]
  - EYELID OEDEMA [None]
  - RASH PUSTULAR [None]
